FAERS Safety Report 9768941 (Version 1)
Quarter: 2013Q4

REPORT INFORMATION
  Report Type: Spontaneous
  Country: GB (occurrence: None)
  Receive Date: 20131216
  Receipt Date: 20131216
  Transmission Date: 20140711
  Serious: Yes (Disabling)
  Sender: FDA-Public Use
  Company Number: GB2013K5043SPO

PATIENT
  Age: 53 Year
  Sex: Male
  Weight: 80 kg

DRUGS (1)
  1. LANSOPRAZOLE [Suspect]

REACTIONS (9)
  - Anxiety [None]
  - Confusional state [None]
  - Delirium [None]
  - Depression [None]
  - Fatigue [None]
  - Dyskinesia [None]
  - Paranoia [None]
  - Suicidal ideation [None]
  - Tremor [None]
